FAERS Safety Report 22080954 (Version 2)
Quarter: 2023Q2

REPORT INFORMATION
  Report Type: Spontaneous
  Country: FI (occurrence: FI)
  Receive Date: 20230309
  Receipt Date: 20230413
  Transmission Date: 20230722
  Serious: Yes (Hospitalization, Other)
  Sender: FDA-Public Use
  Company Number: FI-MYLANLABS-2023M1020157

PATIENT
  Age: 20 Year
  Sex: Female

DRUGS (12)
  1. VENLAFAXINE [Suspect]
     Active Substance: VENLAFAXINE HYDROCHLORIDE
     Indication: Product used for unknown indication
     Route: 065
     Dates: start: 20220120
  2. VENLAFAXINE [Suspect]
     Active Substance: VENLAFAXINE HYDROCHLORIDE
     Route: 065
     Dates: start: 2022
  3. VENLAFAXINE [Suspect]
     Active Substance: VENLAFAXINE HYDROCHLORIDE
     Route: 065
  4. CLOZAPINE [Suspect]
     Active Substance: CLOZAPINE
     Indication: Product used for unknown indication
     Dosage: 250 MILLIGRAM
     Route: 065
     Dates: start: 202202, end: 202303
  5. CLOZAPINE [Suspect]
     Active Substance: CLOZAPINE
     Dosage: 225 MILLIGRAM
     Route: 065
     Dates: start: 202303
  6. CLOZAPINE [Suspect]
     Active Substance: CLOZAPINE
     Dosage: 250 MILLIGRAM
     Route: 065
  7. LAMOTRIGINE [Suspect]
     Active Substance: LAMOTRIGINE
     Indication: Epilepsy
     Dosage: UNKNOWN
     Route: 065
  8. LAMOTRIGINE [Suspect]
     Active Substance: LAMOTRIGINE
     Route: 065
  9. OXAZEPAM [Concomitant]
     Active Substance: OXAZEPAM
     Indication: Product used for unknown indication
  10. CHLORPROTHIXENE [Concomitant]
     Active Substance: CHLORPROTHIXENE
     Indication: Product used for unknown indication
     Dosage: 15 MILLIGRAM, TID
     Route: 065
  11. CHLORPROTHIXENE [Concomitant]
     Active Substance: CHLORPROTHIXENE
     Route: 065
  12. DESOGESTREL [Concomitant]
     Active Substance: DESOGESTREL
     Indication: Product used for unknown indication

REACTIONS (12)
  - Self-destructive behaviour [Recovered/Resolved]
  - Hospitalisation [Unknown]
  - Epilepsy [Unknown]
  - Major depression [Unknown]
  - Enuresis [Unknown]
  - Drooling [Unknown]
  - Drug level increased [Unknown]
  - Personality disorder [Unknown]
  - Avoidant personality disorder [Recovering/Resolving]
  - Blood glucose increased [Unknown]
  - Weight increased [Unknown]
  - Off label use [Unknown]
